FAERS Safety Report 7419661-8 (Version None)
Quarter: 2011Q2

REPORT INFORMATION
  Report Type: 
  Country: None (occurrence: None)
  Receive Date: 20110418
  Receipt Date: 20110405
  Transmission Date: 20111010
  Serious: Yes (Hospitalization)
  Sender: FDA-Public Use
  Company Number: US-JNJFOC-20110403165

PATIENT
  Sex: Male
  Weight: 129.8 kg

DRUGS (2)
  1. LEVAQUIN [Suspect]
     Indication: PNEUMONIA
     Route: 048
  2. ROCEPHIN [Suspect]
     Indication: PNEUMONIA
     Route: 042

REACTIONS (1)
  - TACHYARRHYTHMIA [None]
